FAERS Safety Report 4292509-9 (Version None)
Quarter: 2004Q1

REPORT INFORMATION
  Report Type: 
  Country: None (occurrence: None)
  Receive Date: 20040211
  Receipt Date: 20040211
  Transmission Date: 20041129
  Serious: Yes (Hospitalization)
  Sender: FDA-Public Use
  Company Number: None

PATIENT
  Sex: Male
  Weight: 125.6464 kg

DRUGS (7)
  1. NIFEDIPINE XL 60 MG PFIZER [Suspect]
     Indication: HYPERTENSION
     Dosage: 60 MG ONCE ORAL
     Route: 048
     Dates: start: 20040114, end: 20040114
  2. IRBESARTAN [Concomitant]
  3. SILDENAFIL [Concomitant]
  4. ALLOPURINOL [Concomitant]
  5. TERAZOSIN HCL [Concomitant]
  6. PERCOCET [Concomitant]
  7. IBUPROFEN [Concomitant]

REACTIONS (2)
  - CARDIOVASCULAR DISORDER [None]
  - HEMIPARESIS [None]
